FAERS Safety Report 13339120 (Version 1)
Quarter: 2017Q1

REPORT INFORMATION
  Report Type: Spontaneous
  Country: IN (occurrence: IN)
  Receive Date: 20170315
  Receipt Date: 20170315
  Transmission Date: 20170428
  Serious: Yes (Hospitalization)
  Sender: FDA-Public Use
  Company Number: IN-TORRENT-00000970

PATIENT
  Age: 27 Year
  Sex: Female

DRUGS (5)
  1. CEFTRIAXONE. [Suspect]
     Active Substance: CEFTRIAXONE
  2. METRONIDAZOLE. [Suspect]
     Active Substance: METRONIDAZOLE
  3. METOCLOPRAMIDE. [Suspect]
     Active Substance: METOCLOPRAMIDE
  4. PANTOPRAZOLE [Suspect]
     Active Substance: PANTOPRAZOLE SODIUM
  5. TRAMADOL. [Suspect]
     Active Substance: TRAMADOL

REACTIONS (2)
  - Drug hypersensitivity [Recovered/Resolved]
  - Anaphylactic shock [Recovered/Resolved]
